FAERS Safety Report 8170809-X (Version None)
Quarter: 2012Q1

REPORT INFORMATION
  Report Type: 
  Country: None (occurrence: None)
  Receive Date: 20120228
  Receipt Date: 20120221
  Transmission Date: 20120608
  Serious: Yes (Hospitalization)
  Sender: FDA-Public Use
  Company Number: FR-B.I. PHARMACEUTICALS,INC./RIDGEFIELD-2012-FF-00223FF

PATIENT
  Age: 79 Year

DRUGS (7)
  1. AMLODIPINE BESYLATE AND OLMESARTAN MEDOXOMIL [Concomitant]
     Dosage: 20MG / 5MG
  2. BISOPROLOL FUMARATE AND HYDROCHLOROTHIAZIDE [Concomitant]
     Dosage: 10MG / 6.25MG
  3. PRADAXA [Suspect]
     Dosage: 150 MG
     Route: 048
     Dates: start: 20120112, end: 20120119
  4. PRAVASTATIN [Concomitant]
  5. ACETAMINOPHEN W/ CODEINE [Concomitant]
  6. VICTAN [Concomitant]
  7. PROTHIADEN [Concomitant]

REACTIONS (1)
  - THROMBOSIS [None]
